FAERS Safety Report 25220523 (Version 1)
Quarter: 2025Q2

REPORT INFORMATION
  Report Type: Spontaneous
  Country: US (occurrence: US)
  Receive Date: 20250421
  Receipt Date: 20250421
  Transmission Date: 20250717
  Serious: Yes (Hospitalization, Other)
  Sender: OTSUKA
  Company Number: US-OTSUKA-2025_009332

PATIENT
  Age: 53 Year
  Sex: Female

DRUGS (2)
  1. ARIPIPRAZOLE [Suspect]
     Active Substance: ARIPIPRAZOLE
     Indication: Product used for unknown indication
     Dosage: 20 MG, QD (ONCE DAILY)
     Route: 065
  2. LITHIUM [Suspect]
     Active Substance: LITHIUM
     Indication: Product used for unknown indication
     Dosage: 450 MG, BID (FOR ABOUT THREE MONTHS)
     Route: 065

REACTIONS (5)
  - Acute respiratory failure [Unknown]
  - Mental status changes [Unknown]
  - Drooling [Unknown]
  - Dysphagia [Unknown]
  - Salivary hypersecretion [Unknown]
